FAERS Safety Report 7213824-2 (Version None)
Quarter: 2011Q1

REPORT INFORMATION
  Report Type: 
  Country: None (occurrence: None)
  Receive Date: 20110106
  Receipt Date: 20101223
  Transmission Date: 20110831
  Serious: Yes (Other)
  Sender: FDA-Public Use
  Company Number: PHHY2010US88074

PATIENT
  Sex: Female

DRUGS (3)
  1. FEMARA [Suspect]
     Dosage: 2.5 MG, QD
  2. CHEMOTHERAPEUTICS NOS [Concomitant]
     Dosage: UNK
  3. AVASTIN [Concomitant]
     Dosage: UNK

REACTIONS (6)
  - TUMOUR MARKER INCREASED [None]
  - SKIN LESION [None]
  - INTESTINAL OPERATION [None]
  - MASTECTOMY [None]
  - GASTROINTESTINAL PERFORATION [None]
  - DRUG INEFFECTIVE [None]
